FAERS Safety Report 20033273 (Version 2)
Quarter: 2021Q4

REPORT INFORMATION
  Report Type: Spontaneous
  Country: DE (occurrence: DE)
  Receive Date: 20211104
  Receipt Date: 20211108
  Transmission Date: 20220303
  Serious: Yes (Hospitalization)
  Sender: FDA-Public Use
  Company Number: DE-ADRED-06865-01

PATIENT
  Age: 77 Year
  Sex: Male

DRUGS (9)
  1. CISPLATIN [Suspect]
     Active Substance: CISPLATIN
     Indication: Product used for unknown indication
     Dosage: UNK (NACH SCHEMA)
  2. GEMCITABINE [Suspect]
     Active Substance: GEMCITABINE
     Indication: Product used for unknown indication
     Dosage: UNK(NACH SCHEMA)
  3. PANTOPRAZOL                        /01263201/ [Concomitant]
     Dosage: 40 MILLIGRAM, QD(40 MG, 1-0-0-0, RETARD-TABLETTEN)
     Route: 048
  4. ENOXAPARIN [Concomitant]
     Active Substance: ENOXAPARIN
     Dosage: UNK , BID(8000 IE, 1-0-1-0, FERTIGSPRITZEN)
     Route: 058
  5. PIPAMPERONE HYDROCHLORIDE [Concomitant]
     Active Substance: PIPAMPERONE HYDROCHLORIDE
     Dosage: 40 MILLIGRAM, QD(40 MG, 0-0-0-1, TABLETTEN)
     Route: 048
  6. ACETYLCYSTEINE [Concomitant]
     Active Substance: ACETYLCYSTEINE
     Dosage: 600 MILLIGRAM, QD(600 MG, 1-0-0-0, BRAUSETABLETTEN)
     Route: 048
  7. POLYETHYLENE GLYCOL 3350\POTASSIUM CHLORIDE\SODIUM BICARBONATE\SODIUM [Concomitant]
     Active Substance: POLYETHYLENE GLYCOL 3350\POTASSIUM CHLORIDE\SODIUM BICARBONATE\SODIUM CHLORIDE
     Dosage: UNK
     Route: 048
  8. METAMIZOL                          /06276701/ [Concomitant]
     Dosage: 500 MILLIGRAM(500 MG, BEDARF, TROPFEN)
     Route: 048
  9. ASPIRIN [Concomitant]
     Active Substance: ASPIRIN
     Dosage: 100 MILLIGRAM, QD(100 MG, 1-0-0-0, TABLETTEN)
     Route: 048

REACTIONS (2)
  - Fatigue [Unknown]
  - General physical health deterioration [Unknown]
